FAERS Safety Report 7479011-8 (Version None)
Quarter: 2011Q2

REPORT INFORMATION
  Report Type: 
  Country: None (occurrence: None)
  Receive Date: 20110513
  Receipt Date: 20110502
  Transmission Date: 20111010
  Serious: Yes (Other)
  Sender: FDA-Public Use
  Company Number: AU-JNJFOC-20110501155

PATIENT
  Sex: Female

DRUGS (3)
  1. METHOTREXATE [Concomitant]
  2. STELARA [Suspect]
     Route: 058
  3. STELARA [Suspect]
     Indication: PSORIASIS
     Route: 058

REACTIONS (5)
  - NAUSEA [None]
  - SYNCOPE [None]
  - URINARY TRACT INFECTION [None]
  - HEADACHE [None]
  - ARTHRALGIA [None]
